FAERS Safety Report 25530136 (Version 3)
Quarter: 2025Q3

REPORT INFORMATION
  Report Type: Spontaneous
  Country: GB (occurrence: GB)
  Receive Date: 20250708
  Receipt Date: 20250908
  Transmission Date: 20251020
  Serious: Yes (Other)
  Sender: NOVO NORDISK
  Company Number: GB-NOVOPROD-1451603

PATIENT
  Age: 90 Year
  Sex: Male

DRUGS (1)
  1. INSULIN ASPART [Suspect]
     Active Substance: INSULIN ASPART
     Indication: Type 2 diabetes mellitus
     Route: 058
     Dates: start: 20110810

REACTIONS (4)
  - General physical health deterioration [Recovered/Resolved]
  - Blood glucose increased [Recovered/Resolved]
  - Drug ineffective [Recovered/Resolved]
  - Suspected product tampering [Recovered/Resolved]

NARRATIVE: CASE EVENT DATE: 20250604
